FAERS Safety Report 8105435-1 (Version None)
Quarter: 2012Q1

REPORT INFORMATION
  Report Type: 
  Country: None (occurrence: None)
  Receive Date: 20120201
  Receipt Date: 20120123
  Transmission Date: 20120608
  Serious: Yes (Hospitalization)
  Sender: FDA-Public Use
  Company Number: NO-PFIZER INC-NO-WYE-G06119310

PATIENT
  Sex: Female

DRUGS (2)
  1. METHOTREXATE SODIUM [Suspect]
     Indication: BONE SARCOMA
     Dosage: 15600 MG (4-HOUR INTRAVENOUS INFUSION)
     Route: 042
     Dates: start: 20100419, end: 20100419
  2. NEURONTIN [Interacting]
     Dosage: 1200 MG, UNK
     Route: 048
     Dates: start: 20100413, end: 20100426

REACTIONS (2)
  - TOXICITY TO VARIOUS AGENTS [None]
  - DRUG INTERACTION [None]
